FAERS Safety Report 18379784 (Version 1)
Quarter: 2020Q4

REPORT INFORMATION
  Report Type: Spontaneous
  Country: US (occurrence: US)
  Receive Date: 20201013
  Receipt Date: 20201013
  Transmission Date: 20210114
  Serious: No
  Sender: FDA-Public Use
  Company Number: US-SA-2020SA261971

PATIENT

DRUGS (1)
  1. TUBERSOL [Suspect]
     Active Substance: TUBERCULIN PURIFIED PROTEIN DERIVATIVE
     Indication: TUBERCULIN TEST
     Dosage: UNK
     Route: 065
     Dates: start: 20200914

REACTIONS (4)
  - Vaccination site erythema [Not Recovered/Not Resolved]
  - Vaccination site pruritus [Unknown]
  - Vaccination site rash [Unknown]
  - Vaccination site vesicles [Not Recovered/Not Resolved]

NARRATIVE: CASE EVENT DATE: 202009
